FAERS Safety Report 18283390 (Version 1)
Quarter: 2020Q3

REPORT INFORMATION
  Report Type: Report from Study
  Country: GB (occurrence: GB)
  Receive Date: 20200918
  Receipt Date: 20200918
  Transmission Date: 20201103
  Serious: Yes (Other)
  Sender: FDA-Public Use
  Company Number: GB-BIOGEN-2020BI00922796

PATIENT
  Age: 27 Year
  Sex: Male

DRUGS (4)
  1. AVONEX PEN [Suspect]
     Active Substance: INTERFERON BETA-1A
  2. AVONEX PEN [Suspect]
     Active Substance: INTERFERON BETA-1A
  3. AVONEX PEN [Suspect]
     Active Substance: INTERFERON BETA-1A
     Indication: RELAPSING-REMITTING MULTIPLE SCLEROSIS
     Route: 030
     Dates: start: 20200806, end: 20200820
  4. AVONEX PEN [Suspect]
     Active Substance: INTERFERON BETA-1A

REACTIONS (4)
  - Chills [Not Recovered/Not Resolved]
  - Brain injury [Not Recovered/Not Resolved]
  - Influenza [Not Recovered/Not Resolved]
  - Dysarthria [Not Recovered/Not Resolved]

NARRATIVE: CASE EVENT DATE: 20200806
